FAERS Safety Report 21641756 (Version 2)
Quarter: 2023Q1

REPORT INFORMATION
  Report Type: Other
  Country: US (occurrence: None)
  Receive Date: 20221125
  Receipt Date: 20230112
  Transmission Date: 20230418
  Serious: Yes (Other)
  Sender: FDA-Public Use
  Company Number: US-ROCHE-3225063

PATIENT
  Sex: Female

DRUGS (5)
  1. RITUXIMAB [Suspect]
     Active Substance: RITUXIMAB
     Indication: Diffuse large B-cell lymphoma
     Dosage: OVER 3-8 HOURS, ON DAY 3
     Route: 042
  2. CARFILZOMIB [Suspect]
     Active Substance: CARFILZOMIB
     Indication: Diffuse large B-cell lymphoma
     Dosage: ON DAYS 1, 2, 8, 9
     Route: 042
  3. IFOSFAMIDE [Suspect]
     Active Substance: IFOSFAMIDE
     Indication: Diffuse large B-cell lymphoma
     Dosage: OVER 24 HOURS ON DAY 5
     Route: 042
  4. CARBOPLATIN [Suspect]
     Active Substance: CARBOPLATIN
     Indication: Diffuse large B-cell lymphoma
     Dosage: OVER 1 HOUR ON DAY 5
     Route: 042
  5. ETOPOSIDE [Suspect]
     Active Substance: ETOPOSIDE
     Indication: Diffuse large B-cell lymphoma
     Dosage: OVER 1 HOUR ON DAYS 4-6
     Route: 042

REACTIONS (2)
  - Neutropenia [Unknown]
  - Gastrointestinal haemorrhage [Unknown]
